FAERS Safety Report 16732478 (Version 1)
Quarter: 2019Q3

REPORT INFORMATION
  Report Type: Spontaneous
  Country: CA (occurrence: CA)
  Receive Date: 20190823
  Receipt Date: 20190823
  Transmission Date: 20191005
  Serious: Yes (Other)
  Sender: FDA-Public Use
  Company Number: CA-CELLTRION INC.-2018CA024423

PATIENT

DRUGS (10)
  1. INFLECTRA [Suspect]
     Active Substance: INFLIXIMAB-DYYB
     Dosage: 1200 MG (EVERY 6 WEEKS THEN EVERY 8 WEEKS)
     Route: 065
  2. CALCIUM [Concomitant]
     Active Substance: CALCIUM
  3. INFLECTRA [Suspect]
     Active Substance: INFLIXIMAB-DYYB
     Dosage: 1200 MG (EVERY 6 WEEKS THEN EVERY 8 WEEKS)
     Route: 042
     Dates: start: 20190613
  4. ASACOL [Concomitant]
     Active Substance: MESALAMINE
     Dosage: 1600 MG, 3X/DAY
     Route: 048
  5. VITAMIN D NOS [Concomitant]
     Active Substance: VITAMIN D NOS
  6. INFLECTRA [Suspect]
     Active Substance: INFLIXIMAB-DYYB
     Dosage: 1200 MG, CYCLIC, Q 6 WEEKS THEN EVERY 8 WEEKS
     Route: 042
     Dates: start: 20190808
  7. ASACOL [Concomitant]
     Active Substance: MESALAMINE
     Dosage: 1600 MG, 3X/DAY
  8. VITAMIN B12 [Concomitant]
     Active Substance: CYANOCOBALAMIN
  9. PREDNISONE. [Concomitant]
     Active Substance: PREDNISONE
  10. INFLECTRA [Suspect]
     Active Substance: INFLIXIMAB-DYYB
     Indication: COLITIS ULCERATIVE
     Dosage: 1000 MG (WEEK 0,2 )
     Route: 065
     Dates: start: 20181016

REACTIONS (5)
  - Blood pressure increased [Unknown]
  - Off label use [Unknown]
  - Weight increased [Unknown]
  - Product use issue [Unknown]
  - Blood pressure fluctuation [Unknown]

NARRATIVE: CASE EVENT DATE: 20190808
